FAERS Safety Report 15300780 (Version 1)
Quarter: 2018Q3

REPORT INFORMATION
  Report Type: Spontaneous
  Country: FR (occurrence: FR)
  Receive Date: 20180821
  Receipt Date: 20180821
  Transmission Date: 20181010
  Serious: Yes (Hospitalization)
  Sender: FDA-Public Use
  Company Number: FR-BAYER-2018-155822

PATIENT
  Age: 82 Year
  Sex: Male
  Weight: 80 kg

DRUGS (7)
  1. BIPRETERAX [Interacting]
     Active Substance: INDAPAMIDE\PERINDOPRIL
     Indication: HYPERTENSION
     Dosage: 1 DF, QD
     Route: 048
     Dates: start: 2017, end: 20180227
  2. ULTRAVIST [Suspect]
     Active Substance: IOPROMIDE
     Indication: COMPUTERISED TOMOGRAM ABDOMEN
     Dosage: UNK, ONCE
     Route: 042
  3. TAZOCILLINE [Interacting]
     Active Substance: PIPERACILLIN SODIUM\TAZOBACTAM SODIUM
     Indication: INFECTION
     Dosage: 12 G, QD
     Route: 042
     Dates: start: 20180205
  4. PANTOPRAZOLE SODIUM. [Concomitant]
     Active Substance: PANTOPRAZOLE SODIUM
     Indication: ULCER
     Dosage: 2 DF, QD
     Route: 048
     Dates: start: 20180202
  5. BACTRIM [Interacting]
     Active Substance: SULFAMETHOXAZOLE\TRIMETHOPRIM
     Indication: ANTIBIOTIC PROPHYLAXIS
     Dosage: 2 DF, QD
     Route: 048
     Dates: start: 20180130, end: 20180227
  6. ATORVASTATIN CALCIUM. [Interacting]
     Active Substance: ATORVASTATIN CALCIUM
     Indication: HYPERCHOLESTEROLAEMIA
     Dosage: 1 DF, QD
     Route: 048
     Dates: start: 2017, end: 20180206
  7. METFORMIN HYDROCHLORIDE. [Interacting]
     Active Substance: METFORMIN HYDROCHLORIDE
     Indication: TYPE 2 DIABETES MELLITUS
     Dosage: 3 DF, QD
     Route: 048
     Dates: start: 20180127, end: 20180206

REACTIONS (2)
  - Acute kidney injury [Recovered/Resolved]
  - Rhabdomyolysis [Recovered/Resolved]

NARRATIVE: CASE EVENT DATE: 20180205
